FAERS Safety Report 5186383-6 (Version None)
Quarter: 2006Q4

REPORT INFORMATION
  Report Type: 
  Country: None (occurrence: None)
  Receive Date: 20061213
  Receipt Date: 20061206
  Transmission Date: 20070319
  Serious: Yes (Hospitalization, Other)
  Sender: FDA-Public Use
  Company Number: 2006136377

PATIENT
  Age: 69 Year
  Sex: Female

DRUGS (3)
  1. XALATAN [Suspect]
     Indication: GLAUCOMA
     Dates: start: 20030101
  2. VITAMINS [Concomitant]
  3. CORTISONE ACETATE [Concomitant]

REACTIONS (2)
  - CHOLELITHIASIS [None]
  - SPLENECTOMY [None]
